FAERS Safety Report 7832349-4 (Version None)
Quarter: 2011Q4

REPORT INFORMATION
  Report Type: 
  Country: None (occurrence: None)
  Receive Date: 20111022
  Receipt Date: 20111010
  Transmission Date: 20120403
  Serious: Yes (Other)
  Sender: FDA-Public Use
  Company Number: US-BAYER-2010-006222

PATIENT
  Sex: Female

DRUGS (4)
  1. YAZ [Suspect]
     Indication: CONTRACEPTION
     Dosage: UNK
     Route: 048
     Dates: start: 20080101
  2. IBUPROFEN [Concomitant]
     Dosage: UNK
     Dates: start: 20080101, end: 20100101
  3. ASCORBIC ACID [Concomitant]
  4. YAZ [Suspect]
     Dosage: UNK
     Dates: start: 20090101

REACTIONS (3)
  - PAIN [None]
  - VEIN PAIN [None]
  - DEEP VEIN THROMBOSIS [None]
